FAERS Safety Report 12081827 (Version 1)
Quarter: 2016Q1

REPORT INFORMATION
  Report Type: Spontaneous
  Country: US (occurrence: US)
  Receive Date: 20160216
  Receipt Date: 20160216
  Transmission Date: 20160526
  Serious: Yes (Hospitalization)
  Sender: FDA-Public Use
  Company Number: US-B.I. PHARMACEUTICALS,INC./RIDGEFIELD-2016-BI-08140BP

PATIENT
  Age: 89 Year
  Sex: Male

DRUGS (1)
  1. GILOTRIF [Suspect]
     Active Substance: AFATINIB
     Indication: LUNG NEOPLASM MALIGNANT
     Dosage: 20 MG
     Route: 048
     Dates: start: 201410

REACTIONS (2)
  - Bronchitis [Unknown]
  - Onychoclasis [Unknown]

NARRATIVE: CASE EVENT DATE: 20160202
